FAERS Safety Report 16775518 (Version 2)
Quarter: 2019Q3

REPORT INFORMATION
  Report Type: Spontaneous
  Country: US (occurrence: US)
  Receive Date: 20190905
  Receipt Date: 20190917
  Transmission Date: 20191005
  Serious: Yes (Hospitalization, Other)
  Sender: FDA-Public Use
  Company Number: US-JNJFOC-20190832981

PATIENT
  Age: 57 Year
  Sex: Male

DRUGS (12)
  1. METHOTREXATE. [Suspect]
     Active Substance: METHOTREXATE
     Dosage: ON DAY 5 (THE PATIENT UNDERWENT 4 ALTERNATING CYCLES OF R-CODOX-M/R-IVAC, AS FOLLOWS: R-CODOX-M
     Route: 037
  2. VINCRISTINE [Suspect]
     Active Substance: VINCRISTINE
     Indication: DIFFUSE LARGE B-CELL LYMPHOMA
     Dosage: DAY 1-2 (CYCLE 1 AND 3) (THE PATIENT UNDERWENT 4 ALTERNATING CYCLES OF R-CODOX-M/R-IVAC
     Route: 042
  3. RITUXIMAB. [Suspect]
     Active Substance: RITUXIMAB
     Indication: DIFFUSE LARGE B-CELL LYMPHOMA
     Dosage: DAY 1 (CYCLE 1 AND 3) (THE PATIENT UNDERWENT 4 ALTERNATING CYCLES OF R-CODOX-M/R-IVAC
     Route: 042
  4. CYCLOPHOSPHAMIDE. [Suspect]
     Active Substance: CYCLOPHOSPHAMIDE
     Indication: DIFFUSE LARGE B-CELL LYMPHOMA
     Dosage: DAY 1-4 (CYCLE 1 AND 3) (THE PATIENT UNDERWENT 4 ALTERNATING CYCLES OF R-CODOX-M/R-IVAC
     Route: 042
  5. CYTARABINE. [Suspect]
     Active Substance: CYTARABINE
     Indication: DIFFUSE LARGE B-CELL LYMPHOMA
     Dosage: ON DAYS 1 AND 2 (TOTAL OF FOUR DOSES) (THE PATIENT UNDERWENT 4 ALTERNATING CYCLES OF R-CODOX-M/R-...
     Route: 042
  6. RITUXIMAB. [Suspect]
     Active Substance: RITUXIMAB
     Dosage: ON DAY 1 (CYCLE 2 AND 4) (THE PATIENT UNDERWENT 4 ALTERNATING CYCLES OF R-CODOX-M/R-IVAC
     Route: 042
  7. MESNA. [Suspect]
     Active Substance: MESNA
     Indication: DIFFUSE LARGE B-CELL LYMPHOMA
     Dosage: DAY 1-5 WITH MESNA (THE PATIENT UNDERWENT 4 ALTERNATING CYCLES OF R-CODOX-M/R-IVAC
     Route: 042
  8. DOXORUBICIN HYDROCHLORIDE. [Suspect]
     Active Substance: DOXORUBICIN HYDROCHLORIDE
     Indication: DIFFUSE LARGE B-CELL LYMPHOMA
     Dosage: DAY 1 (CYCLE 1 AND 3), (THE PATIENT UNDERWENT 4 ALTERNATING CYCLES OF R-CODOX-M/R-IVAC
     Route: 042
  9. METHOTREXATE. [Suspect]
     Active Substance: METHOTREXATE
     Indication: DIFFUSE LARGE B-CELL LYMPHOMA
     Dosage: DAY 1-2 (CYCLE 1 AND 3) (THE PATIENT UNDERWENT 4 ALTERNATING CYCLES OF R-CODOX-M/R-IVAC
     Route: 042
  10. IFOSFAMIDE. [Suspect]
     Active Substance: IFOSFAMIDE
     Indication: DIFFUSE LARGE B-CELL LYMPHOMA
     Dosage: DAY 1-5 WITH MESNA (CYCLE 2 AND 4) (THE PATIENT UNDERWENT 4 ALTERNATING CYCLES OF R-CODOX-M/R-IVA
     Route: 042
  11. ETOPOSIDE. [Suspect]
     Active Substance: ETOPOSIDE
     Indication: DIFFUSE LARGE B-CELL LYMPHOMA
     Dosage: DAY 1-5 (THE PATIENT UNDERWENT 4 ALTERNATING CYCLES OF R-CODOX-M/R-IVAC, AS FOLLOWS: R-CODOX-M
     Route: 042
  12. FOLINIC ACID [Suspect]
     Active Substance: LEUCOVORIN
     Indication: DIFFUSE LARGE B-CELL LYMPHOMA
     Dosage: ON DAY 8 (CYCLE 1 AND 3) (THE PATIENT UNDERWENT 4 ALTERNATING CYCLES OF R-CODOX-M/R-IVAC
     Route: 042

REACTIONS (9)
  - Colitis [Recovered/Resolved]
  - Thrombocytopenia [Unknown]
  - Anaemia [Unknown]
  - Transaminases increased [Recovered/Resolved]
  - Weight decreased [Unknown]
  - Acute kidney injury [Recovered/Resolved]
  - Febrile neutropenia [Unknown]
  - Product use in unapproved indication [Unknown]
  - Off label use [Unknown]
